FAERS Safety Report 5709499-1 (Version None)
Quarter: 2008Q2

REPORT INFORMATION
  Report Type: 
  Country: None (occurrence: None)
  Receive Date: 20080417
  Receipt Date: 20080417
  Transmission Date: 20081010
  Serious: No
  Sender: FDA-Public Use
  Company Number: None

PATIENT
  Age: 43 Year
  Sex: Female

DRUGS (1)
  1. INSULIN DETEMIR [Suspect]
     Dates: start: 20080229, end: 20080305

REACTIONS (3)
  - ERYTHEMA [None]
  - PRURITUS [None]
  - RASH [None]
